FAERS Safety Report 4723876-7 (Version None)
Quarter: 2005Q3

REPORT INFORMATION
  Report Type: 
  Country: None (occurrence: None)
  Receive Date: 20050721
  Receipt Date: 20050712
  Transmission Date: 20060218
  Serious: Yes (Death, Hospitalization)
  Sender: FDA-Public Use
  Company Number: HQWYE470015JUN05

PATIENT
  Sex: Female
  Weight: 3.46 kg

DRUGS (2)
  1. EFFEXOR XR [Suspect]
     Dosage: SEE IMAGE
     Dates: end: 20050401
  2. EFFEXOR XR [Suspect]
     Dosage: SEE IMAGE
     Dates: start: 20050401

REACTIONS (14)
  - ASTHENIA [None]
  - BACTERIAL INFECTION [None]
  - BLOOD LACTIC ACID INCREASED [None]
  - DRUG EXPOSURE DURING PREGNANCY [None]
  - DYSPNOEA [None]
  - FEEDING DISORDER NEONATAL [None]
  - FLOPPY INFANT [None]
  - GASTROOESOPHAGEAL REFLUX DISEASE [None]
  - HYPOTONIA NEONATAL [None]
  - NEONATAL DISORDER [None]
  - POOR WEIGHT GAIN NEONATAL [None]
  - RESPIRATORY DISORDER NEONATAL [None]
  - VOMITING NEONATAL [None]
  - WEIGHT DECREASE NEONATAL [None]
